FAERS Safety Report 8356430-9 (Version None)
Quarter: 2012Q2

REPORT INFORMATION
  Report Type: 
  Country: None (occurrence: None)
  Receive Date: 20120511
  Receipt Date: 20120511
  Transmission Date: 20120825
  Serious: Yes (Disabling)
  Sender: FDA-Public Use
  Company Number: None

PATIENT
  Age: 42 Year
  Sex: Female
  Weight: 89.8122 kg

DRUGS (1)
  1. HUMIRA [Suspect]
     Indication: ANKYLOSING SPONDYLITIS
     Dosage: 40MG Q 2 WEEKS SQ  ONE DOSE ONLY
     Route: 058
     Dates: start: 20120419, end: 20120419

REACTIONS (2)
  - STEVENS-JOHNSON SYNDROME [None]
  - IMPAIRED WORK ABILITY [None]
